FAERS Safety Report 14298017 (Version 3)
Quarter: 2018Q1

REPORT INFORMATION
  Report Type: Spontaneous
  Country: CN (occurrence: CN)
  Receive Date: 20171218
  Receipt Date: 20180109
  Transmission Date: 20180509
  Serious: No
  Sender: FDA-Public Use
  Company Number: CN-BAXTER-2017BAX041558

PATIENT
  Age: 47 Year
  Sex: Male

DRUGS (1)
  1. 0.9% SODIUM CHLORIDE INJECTION [Suspect]
     Active Substance: SODIUM CHLORIDE
     Indication: INVESTIGATION
     Route: 065
     Dates: start: 20171203, end: 20171203

REACTIONS (3)
  - Heart rate increased [Recovered/Resolved]
  - Product container issue [Unknown]
  - Blood pressure increased [Recovered/Resolved]

NARRATIVE: CASE EVENT DATE: 20171203
